FAERS Safety Report 8548283-0 (Version None)
Quarter: 2012Q3

REPORT INFORMATION
  Report Type: 
  Country: None (occurrence: None)
  Receive Date: 20120719
  Receipt Date: 20120719
  Transmission Date: 20120928
  Serious: No
  Sender: FDA-Public Use
  Company Number: None

PATIENT
  Age: 75 Year
  Sex: Female
  Weight: 58.0604 kg

DRUGS (1)
  1. BYSTOLIC [Suspect]
     Indication: CARDIAC DISORDER
     Dosage: 5 MG ONCE A DAY
     Dates: start: 20120508

REACTIONS (1)
  - ONYCHOMYCOSIS [None]
